FAERS Safety Report 9218546 (Version 1)
Quarter: 2013Q2

REPORT INFORMATION
  Report Type: Spontaneous
  Country: US (occurrence: US)
  Receive Date: 20130409
  Receipt Date: 20130409
  Transmission Date: 20140414
  Serious: No
  Sender: FDA-Public Use
  Company Number: US-009507513-1304USA003646

PATIENT
  Sex: Female

DRUGS (1)
  1. AZASITE [Suspect]
     Indication: DRY EYE
     Dosage: ONE DROP IN EACH EYE TWICE A DAY FOR ONE WEEK FOLLOWED BY ONE DROP IN EACH EYE ONCE A DAY FOR 6 WEEK
     Route: 047
     Dates: start: 20130315

REACTIONS (2)
  - Inappropriate schedule of drug administration [Unknown]
  - No adverse event [Unknown]
